FAERS Safety Report 5691169-X (Version None)
Quarter: 2008Q2

REPORT INFORMATION
  Report Type: 
  Country: None (occurrence: None)
  Receive Date: 20080401
  Receipt Date: 20080401
  Transmission Date: 20081010
  Serious: Yes (Life-Threatening, Hospitalization)
  Sender: FDA-Public Use
  Company Number: None

PATIENT
  Age: 49 Year
  Sex: Female
  Weight: 77.5651 kg

DRUGS (1)
  1. SINGULAIR [Suspect]
     Indication: ASTHMA
     Dosage: 10 MG ONE EVERYDAY @ BED PO
     Route: 048
     Dates: start: 19980920, end: 20080329

REACTIONS (2)
  - COMPLETED SUICIDE [None]
  - DEPRESSION [None]
